FAERS Safety Report 6837729-1 (Version None)
Quarter: 2010Q3

REPORT INFORMATION
  Report Type: 
  Country: None (occurrence: None)
  Receive Date: 20100709
  Receipt Date: 20100510
  Transmission Date: 20110219
  Serious: Yes (Other)
  Sender: FDA-Public Use
  Company Number: GB-ACCORD-005103

PATIENT
  Age: 55 Year
  Sex: Male
  Weight: 104 kg

DRUGS (3)
  1. SIMVASTATIN [Suspect]
     Indication: PRODUCT USED FOR UNKNOWN INDICATION
     Dosage: 80.00 MG-
     Dates: start: 20030330, end: 20070117
  2. BISOPROLOL FUMARATE [Concomitant]
  3. SPIRONOLACTONE [Concomitant]

REACTIONS (1)
  - MYALGIA [None]
